FAERS Safety Report 7484116-1 (Version None)
Quarter: 2011Q2

REPORT INFORMATION
  Report Type: 
  Country: None (occurrence: None)
  Receive Date: 20110517
  Receipt Date: 20100116
  Transmission Date: 20111010
  Serious: Yes (Death, Other)
  Sender: FDA-Public Use
  Company Number: US-BAYER-201011352NA

PATIENT
  Age: 68 Year
  Sex: Male
  Weight: 92.971 kg

DRUGS (14)
  1. TRASYLOL [Suspect]
     Indication: CORONARY ARTERY BYPASS
     Dosage: SOLUTION FOR INFUSION
     Route: 042
     Dates: start: 20030714
  2. CEFUROXIME [Concomitant]
     Dosage: 1.5 G, UNK
     Route: 042
  3. NITROGLYCERIN [Concomitant]
     Dosage: 50 MG/250 ML
     Route: 042
  4. HYDROCHLOROTHIAZIDE [Concomitant]
     Dosage: DAILY
     Route: 048
  5. FUROSEMIDE [Concomitant]
     Dosage: 20 MG, UNK
     Route: 042
  6. TIAZAC [Concomitant]
     Dosage: DAILY
     Route: 048
  7. CORLOPAM [Concomitant]
     Route: 042
  8. DOPAMINE HCL [Concomitant]
     Dosage: 1.3 MICROGRAM
     Route: 042
  9. HEPARIN [Concomitant]
     Dosage: 20,000 UNITS
     Route: 042
  10. PROTAMINE SULFATE [Concomitant]
     Route: 042
  11. LEVOXYL [Concomitant]
     Route: 048
  12. NEXIUM [Concomitant]
     Dosage: DAILY
     Route: 048
  13. AMIODARONE HCL [Concomitant]
     Dosage: 150 MG, UNK
     Route: 042
     Dates: start: 20030714, end: 20030714
  14. RED BLOOD CELLS, CONCENTRATED [Concomitant]
     Dosage: 2 UNITS
     Route: 042

REACTIONS (14)
  - UNEVALUABLE EVENT [None]
  - PAIN [None]
  - ANHEDONIA [None]
  - DEATH [None]
  - DEPRESSION [None]
  - RENAL IMPAIRMENT [None]
  - RENAL FAILURE [None]
  - CEREBROVASCULAR ACCIDENT [None]
  - CARDIAC DISORDER [None]
  - ORGAN FAILURE [None]
  - FEAR [None]
  - RENAL INJURY [None]
  - ANXIETY [None]
  - INJURY [None]
